FAERS Safety Report 8532728-6 (Version None)
Quarter: 2012Q3

REPORT INFORMATION
  Report Type: 
  Country: None (occurrence: None)
  Receive Date: 20120724
  Receipt Date: 20120717
  Transmission Date: 20120928
  Serious: Yes (Other)
  Sender: FDA-Public Use
  Company Number: PHHY2012BR054074

PATIENT
  Age: 69 Year
  Sex: Female

DRUGS (5)
  1. FORMOTEROL FUMARATE [Suspect]
     Indication: ASTHMA
     Dosage: 4 DF (2 CAPSULES ON AN EMPTY STOMACH AND 2 CAPSULES AT NIGHT )
     Dates: start: 20100101
  2. INDAPAMIDE [Concomitant]
     Indication: BLOOD PRESSURE
     Dosage: 1 DF, QD
     Route: 048
  3. ENALAPRIL MALEATE [Concomitant]
     Dosage: 10 MG, UNK
     Route: 048
  4. PANTOPRAZOLE [Concomitant]
     Indication: GASTRITIS
     Dosage: 1 DF, QD
     Route: 048
  5. ENALAPRIL MALEATE [Concomitant]
     Indication: BLOOD PRESSURE
     Dosage: 20 MG, QD
     Route: 048

REACTIONS (6)
  - COUGH [None]
  - INFLUENZA [None]
  - DYSPNOEA [None]
  - CHEST PAIN [None]
  - LUNG NEOPLASM [None]
  - BACK PAIN [None]
